FAERS Safety Report 15407882 (Version 1)
Quarter: 2018Q3

REPORT INFORMATION
  Report Type: Spontaneous
  Country: CA (occurrence: CA)
  Receive Date: 20180920
  Receipt Date: 20180920
  Transmission Date: 20181010
  Serious: Yes (Other)
  Sender: FDA-Public Use
  Company Number: CA-JNJFOC-20180906521

PATIENT
  Sex: Female

DRUGS (7)
  1. BREO ELLIPTA [Concomitant]
     Active Substance: FLUTICASONE FUROATE\VILANTEROL TRIFENATATE
     Dosage: 200
     Route: 055
     Dates: start: 20161115
  2. LOSEC [Concomitant]
     Active Substance: OMEPRAZOLE
     Route: 065
     Dates: start: 20130110
  3. INCRUSE ELLIPTA [Concomitant]
     Active Substance: UMECLIDINIUM BROMIDE
     Route: 055
     Dates: start: 20180417
  4. ASPIRIN. [Concomitant]
     Active Substance: ASPIRIN
     Route: 065
     Dates: start: 20171010
  5. REMICADE [Suspect]
     Active Substance: INFLIXIMAB
     Indication: RHEUMATOID ARTHRITIS
     Route: 042
  6. VERAPAMIL [Concomitant]
     Active Substance: VERAPAMIL HYDROCHLORIDE
     Route: 065
     Dates: start: 20150721
  7. OXYNEO [Concomitant]
     Active Substance: OXYCODONE
     Route: 065
     Dates: start: 20151221

REACTIONS (5)
  - Cerebrovascular accident [Unknown]
  - Rheumatoid arthritis [Not Recovered/Not Resolved]
  - Renal failure [Unknown]
  - Cardiac disorder [Unknown]
  - Chronic obstructive pulmonary disease [Unknown]
